FAERS Safety Report 6585627-3 (Version None)
Quarter: 2010Q1

REPORT INFORMATION
  Report Type: 
  Country: None (occurrence: None)
  Receive Date: 20100217
  Receipt Date: 20100127
  Transmission Date: 20100710
  Serious: Yes (Other)
  Sender: FDA-Public Use
  Company Number: US-BAYER-201012949NA

PATIENT
  Age: 65 Year
  Sex: Female

DRUGS (1)
  1. ULTRAVIST 370 [Suspect]
     Indication: DRUG USE FOR UNKNOWN INDICATION
     Dosage: TOTAL DAILY DOSE: 90 ML
     Dates: start: 20100126, end: 20100126

REACTIONS (4)
  - FEELING ABNORMAL [None]
  - HYPOTENSION [None]
  - PARAESTHESIA ORAL [None]
  - PRESYNCOPE [None]
